FAERS Safety Report 11582633 (Version 1)
Quarter: 2015Q4

REPORT INFORMATION
  Report Type: Spontaneous
  Country: US (occurrence: US)
  Receive Date: 20151001
  Receipt Date: 20151001
  Transmission Date: 20160304
  Serious: No
  Sender: FDA-Public Use
  Company Number: US-ROCHE-692682

PATIENT
  Sex: Male

DRUGS (2)
  1. PEGASYS [Suspect]
     Active Substance: PEGINTERFERON ALFA-2A
     Indication: HEPATITIS C
     Dosage: FORM REPORTED AS PRE FILLED SYRINGES.
     Route: 065
  2. RIBAVIRIN. [Suspect]
     Active Substance: RIBAVIRIN
     Indication: HEPATITIS C
     Dosage: DRUG REPORTED AS ZYGENERICS. DOSE REPORTED AS 800 MG PER DAY DIVIDED DOSES.
     Route: 065

REACTIONS (3)
  - Headache [Recovering/Resolving]
  - Pain [Unknown]
  - Diarrhoea [Unknown]
